FAERS Safety Report 15671640 (Version 1)
Quarter: 2018Q4

REPORT INFORMATION
  Report Type: Spontaneous
  Country: IR (occurrence: IR)
  Receive Date: 20181129
  Receipt Date: 20181129
  Transmission Date: 20190205
  Serious: Yes (Other)
  Sender: FDA-Public Use
  Company Number: IR-MYLANLABS-2018M1088116

PATIENT
  Age: 50 Year
  Sex: Female

DRUGS (2)
  1. EPINEPHRINE. [Suspect]
     Active Substance: EPINEPHRINE
     Indication: GENERAL ANAESTHESIA
     Dosage: INJECTION OF 20 ML OF DILUTED EPINEPHRINE WITH NORMAL SALINE
     Route: 065
     Dates: start: 201601
  2. NORMAL SALINE [Concomitant]
     Active Substance: SODIUM CHLORIDE
     Dosage: INJECTION OF 20 ML OF DILUTED EPINEPHRINE WITH NORMAL SALINE
     Route: 065
     Dates: start: 201601

REACTIONS (2)
  - Mydriasis [Recovered/Resolved]
  - Angle closure glaucoma [Recovered/Resolved]
